FAERS Safety Report 4801698-6 (Version None)
Quarter: 2005Q4

REPORT INFORMATION
  Report Type: 
  Country: None (occurrence: None)
  Receive Date: 20051018
  Receipt Date: 20051005
  Transmission Date: 20060501
  Serious: Yes (Other)
  Sender: FDA-Public Use
  Company Number: FR-GLAXOSMITHKLINE-B0396436B

PATIENT

DRUGS (6)
  1. COMBIVIR [Suspect]
     Indication: HIV INFECTION
     Dates: end: 20050825
  2. TELZIR [Suspect]
     Indication: HIV INFECTION
     Dates: end: 20050825
  3. ANTICOAGULANT [Suspect]
     Dates: start: 20050101, end: 20050101
  4. SUSTIVA [Suspect]
     Indication: HIV INFECTION
  5. ZIDOVUDINE [Concomitant]
     Indication: ANTIVIRAL PROPHYLAXIS
  6. ZIDOVUDINE [Concomitant]
     Route: 048

REACTIONS (2)
  - DRUG EXPOSURE DURING PREGNANCY [None]
  - INTRACRANIAL HAEMATOMA [None]
